FAERS Safety Report 4532497-0 (Version None)
Quarter: 2004Q4

REPORT INFORMATION
  Report Type: 
  Country: None (occurrence: None)
  Receive Date: 20041206
  Receipt Date: 20040921
  Transmission Date: 20050328
  Serious: No
  Sender: FDA-Public Use
  Company Number: USA040978825

PATIENT
  Age: 76 Year
  Sex: Female

DRUGS (6)
  1. CYMBALTA [Suspect]
     Indication: DEPRESSION
     Dosage: 30 MG AT NOON
     Dates: start: 20040918
  2. SYNTHROID [Concomitant]
  3. ACIPHEX [Concomitant]
  4. RANITIDINE [Concomitant]
  5. RHINOCORT [Concomitant]
  6. SINGULAIR (MONTELUKAST) [Concomitant]

REACTIONS (4)
  - DIZZINESS [None]
  - FATIGUE [None]
  - HYPERHIDROSIS [None]
  - SOMNOLENCE [None]
